FAERS Safety Report 26129834 (Version 1)
Quarter: 2025Q4

REPORT INFORMATION
  Report Type: Report from Study
  Country: EU (occurrence: EU)
  Receive Date: 20251208
  Receipt Date: 20251208
  Transmission Date: 20260117
  Serious: Yes (Other)
  Sender: BIOVITRUM
  Company Number: EU-AstraZeneca-CH-00927292A

PATIENT
  Sex: Male
  Weight: 8.05 kg

DRUGS (1)
  1. SYNAGIS [Suspect]
     Active Substance: PALIVIZUMAB
     Indication: Cardiac disorder
     Route: 030
     Dates: start: 20241007

REACTIONS (1)
  - Umbilical hernia [Not Recovered/Not Resolved]
